FAERS Safety Report 11941038 (Version 1)
Quarter: 2016Q1

REPORT INFORMATION
  Report Type: Spontaneous
  Country: JP (occurrence: JP)
  Receive Date: 20160122
  Receipt Date: 20160122
  Transmission Date: 20160526
  Serious: Yes (Other)
  Sender: FDA-Public Use
  Company Number: JP-REGENERON PHARMACEUTICALS, INC.-2016-10355

PATIENT

DRUGS (2)
  1. EYLEA [Suspect]
     Active Substance: AFLIBERCEPT
     Indication: DIABETIC RETINOPATHY
     Dosage: INJECTIONS WERE GIVEN 8 TIMES
     Dates: start: 201504
  2. EYLEA [Suspect]
     Active Substance: AFLIBERCEPT
     Indication: AGE-RELATED MACULAR DEGENERATION
     Dosage: ONE EYE AT A TIME, ONCE A MONTH, 3 TIMES
     Route: 031
     Dates: start: 2012

REACTIONS (1)
  - Retinal oedema [Not Recovered/Not Resolved]
